FAERS Safety Report 7193634-5 (Version None)
Quarter: 2010Q4

REPORT INFORMATION
  Report Type: 
  Country: None (occurrence: None)
  Receive Date: 20101223
  Receipt Date: 20101220
  Transmission Date: 20110411
  Serious: Yes (Hospitalization, Other)
  Sender: FDA-Public Use
  Company Number: GB-NOVOPROD-320449

PATIENT
  Sex: Male

DRUGS (2)
  1. NOVORAPID PENFILL [Suspect]
     Indication: DIABETES MELLITUS
     Dosage: 2 IU, QD
  2. LEVEMIR [Suspect]
     Indication: DIABETES MELLITUS
     Dosage: UNK

REACTIONS (3)
  - DEVICE FAILURE [None]
  - LOCALISED INFECTION [None]
  - URINARY TRACT INFECTION [None]
